APPROVED DRUG PRODUCT: ALBUTEROL SULFATE
Active Ingredient: ALBUTEROL SULFATE
Strength: EQ 0.083% BASE
Dosage Form/Route: SOLUTION;INHALATION
Application: A073533 | Product #001
Applicant: ACTAVIS MID ATLANTIC LLC
Approved: Sep 26, 1995 | RLD: No | RS: No | Type: DISCN